FAERS Safety Report 4962035-X (Version None)
Quarter: 2006Q2

REPORT INFORMATION
  Report Type: 
  Country: None (occurrence: None)
  Receive Date: 20060404
  Receipt Date: 20060328
  Transmission Date: 20061013
  Serious: Yes (Other)
  Sender: FDA-Public Use
  Company Number: US-ROCHE-442359

PATIENT
  Sex: Male
  Weight: 2.3 kg

DRUGS (1)
  1. VALIUM [Suspect]
     Indication: ANXIETY
     Route: 064
     Dates: start: 19610615

REACTIONS (3)
  - INFANT [None]
  - INGUINAL HERNIA [None]
  - MATERNAL DRUGS AFFECTING FOETUS [None]
